FAERS Safety Report 9424312 (Version 2)
Quarter: 2013Q3

REPORT INFORMATION
  Report Type: Spontaneous
  Country: DK (occurrence: DK)
  Receive Date: 20130724
  Receipt Date: 20130903
  Transmission Date: 20140515
  Serious: Yes (Hospitalization)
  Sender: FDA-Public Use
  Company Number: 1807791

PATIENT
  Age: 57 Year
  Sex: Female

DRUGS (5)
  1. PACLITAXEL [Suspect]
     Indication: OVARIAN CANCER
     Route: 042
     Dates: start: 20130516, end: 20130516
  2. CARBOPLATIN [Suspect]
     Indication: OVARIAN CANCER
     Route: 042
     Dates: start: 20130516, end: 20130516
  3. BEVACIZUMAB [Concomitant]
  4. METOPIMAZINE [Concomitant]
  5. ENALAPRIL MALEATE [Concomitant]

REACTIONS (4)
  - Hyponatraemia [None]
  - Dizziness [None]
  - Heart rate increased [None]
  - Hypotension [None]
